FAERS Safety Report 10791868 (Version 1)
Quarter: 2015Q1

REPORT INFORMATION
  Report Type: Spontaneous
  Country: GB (occurrence: None)
  Receive Date: 20150211
  Receipt Date: 20150211
  Transmission Date: 20150721
  Serious: Yes (Hospitalization, Other)
  Sender: FDA-Public Use
  Company Number: 2015HAR00003

PATIENT
  Sex: Female

DRUGS (2)
  1. TERBINAFINE 250 MG (TERBINAFINE) TABLET [Suspect]
     Active Substance: TERBINAFINE
     Indication: ONYCHOMYCOSIS
     Route: 048
  2. PARACETAMOL (ACETAMINOPHEN) [Concomitant]
     Active Substance: ACETAMINOPHEN

REACTIONS (4)
  - Hepatitis cholestatic [None]
  - Erythema nodosum [None]
  - Poor quality sleep [None]
  - Abscess limb [None]
